FAERS Safety Report 9552026 (Version 1)
Quarter: 2013Q3

REPORT INFORMATION
  Report Type: Spontaneous
  Country: US (occurrence: US)
  Receive Date: 20130925
  Receipt Date: 20130925
  Transmission Date: 20140515
  Serious: Yes (Hospitalization, Other)
  Sender: FDA-Public Use
  Company Number: PHEH2013US020011

PATIENT
  Sex: Female

DRUGS (5)
  1. DIOVAN HCT [Suspect]
     Dosage: 1 DF, (160 MG VALS AND 25 MG HYDR)
  2. SYNTHROID [Concomitant]
  3. MULTI-VIT [Concomitant]
  4. FISH OIL [Concomitant]
  5. OMEGA 3 [Concomitant]

REACTIONS (3)
  - Palpitations [Unknown]
  - Paraesthesia [Unknown]
  - Breast cancer [Unknown]
